FAERS Safety Report 14366527 (Version 1)
Quarter: 2018Q1

REPORT INFORMATION
  Report Type: Spontaneous
  Country: US (occurrence: US)
  Receive Date: 20180108
  Receipt Date: 20180108
  Transmission Date: 20180509
  Serious: Yes (Other)
  Sender: FDA-Public Use
  Company Number: None

PATIENT
  Age: 51 Year
  Sex: Female
  Weight: 80.8 kg

DRUGS (1)
  1. DAPTOMYCIN 500MG POWDER VIAL HOSPIRA [Suspect]
     Active Substance: DAPTOMYCIN
     Indication: OSTEOMYELITIS
     Dosage: DOSE - 500 MG/10 MLS NS?ROUTE - IV PUSH?FREQUENCY - Q24 HOURS
     Route: 042
     Dates: start: 20171222, end: 20180105

REACTIONS (4)
  - Musculoskeletal stiffness [None]
  - Tremor [None]
  - Chills [None]
  - Infusion related reaction [None]

NARRATIVE: CASE EVENT DATE: 20171227
